FAERS Safety Report 7568615-X (Version None)
Quarter: 2011Q2

REPORT INFORMATION
  Report Type: 
  Country: None (occurrence: None)
  Receive Date: 20110623
  Receipt Date: 20110614
  Transmission Date: 20111010
  Serious: Yes (Other)
  Sender: FDA-Public Use
  Company Number: PHHY2011JP53096

PATIENT

DRUGS (4)
  1. VITAMIN B6 [Concomitant]
     Dosage: UNK
     Route: 048
     Dates: start: 20101201
  2. NEOISCOTIN [Concomitant]
     Indication: PULMONARY TUBERCULOSIS
     Dosage: UNK
     Route: 048
     Dates: start: 20101201
  3. RIFAMPICIN [Suspect]
     Indication: PULMONARY TUBERCULOSIS
     Dosage: UNK
     Route: 048
     Dates: start: 20101201
  4. AVELOX [Concomitant]
     Dosage: UNK
     Route: 048
     Dates: start: 20101201

REACTIONS (2)
  - VITAMIN K DECREASED [None]
  - PROTEIN INDUCED BY VITAMIN K ABSENCE OR ANTAGONIST II INCREASED [None]
